FAERS Safety Report 16834554 (Version 1)
Quarter: 2019Q3

REPORT INFORMATION
  Report Type: Spontaneous
  Country: JP (occurrence: JP)
  Receive Date: 20190920
  Receipt Date: 20190920
  Transmission Date: 20191005
  Serious: Yes (Other)
  Sender: FDA-Public Use
  Company Number: JP-BAUSCH-BL-2019-054884

PATIENT
  Age: 37 Year
  Sex: Male

DRUGS (2)
  1. LUMICEF [Suspect]
     Active Substance: BRODALUMAB
     Indication: PSORIATIC ARTHROPATHY
     Route: 058
  2. LUMICEF [Suspect]
     Active Substance: BRODALUMAB
     Route: 058

REACTIONS (1)
  - Sarcoidosis [Not Recovered/Not Resolved]
